FAERS Safety Report 4508692-3 (Version None)
Quarter: 2004Q4

REPORT INFORMATION
  Report Type: 
  Country: None (occurrence: None)
  Receive Date: 20041122
  Receipt Date: 20041122
  Transmission Date: 20050328
  Serious: Yes (Life-Threatening)
  Sender: FDA-Public Use
  Company Number: None

PATIENT
  Age: 13 Year
  Sex: Female
  Weight: 51.7101 kg

DRUGS (2)
  1. AMOXICILLIN [Suspect]
     Indication: EAR INFECTION
     Dosage: 500MG  2 TIMES DAY  ORAL
     Route: 048
     Dates: start: 19921001, end: 20041116
  2. AMOXICILLIN [Suspect]
     Indication: SINUSITIS
     Dosage: 500MG  2 TIMES DAY  ORAL
     Route: 048
     Dates: start: 19921001, end: 20041116

REACTIONS (1)
  - HENOCH-SCHONLEIN PURPURA [None]
